FAERS Safety Report 12716603 (Version 2)
Quarter: 2016Q4

REPORT INFORMATION
  Report Type: Spontaneous
  Country: IT (occurrence: IT)
  Receive Date: 20160906
  Receipt Date: 20161010
  Transmission Date: 20170207
  Serious: Yes (Hospitalization)
  Sender: FDA-Public Use
  Company Number: IT-009507513-1609ITA000398

PATIENT
  Age: 67 Year
  Sex: Female
  Weight: 52 kg

DRUGS (3)
  1. HARVONI [Suspect]
     Active Substance: LEDIPASVIR\SOFOSBUVIR
     Indication: HEPATITIS C
     Dosage: 1 DOSE UNIT DAILY
     Route: 048
     Dates: start: 20160325, end: 20160728
  2. EUTIROX [Concomitant]
     Active Substance: LEVOTHYROXINE SODIUM
     Indication: HYPOTHYROIDISM
     Route: 048
  3. REBETOL [Suspect]
     Active Substance: RIBAVIRIN
     Indication: HEPATITIS C
     Dosage: 3 DOSE UNITS DAILY
     Route: 048
     Dates: start: 20160325, end: 20160728

REACTIONS (2)
  - Dysarthria [Recovered/Resolved]
  - Asthenia [Recovered/Resolved]

NARRATIVE: CASE EVENT DATE: 20160721
